FAERS Safety Report 14848732 (Version 1)
Quarter: 2018Q2

REPORT INFORMATION
  Report Type: Spontaneous
  Country: PT (occurrence: PT)
  Receive Date: 20180504
  Receipt Date: 20180504
  Transmission Date: 20180711
  Serious: Yes (Life-Threatening, Hospitalization)
  Sender: FDA-Public Use
  Company Number: PT-TEVA-2018-PT-888179

PATIENT
  Age: 25 Year
  Sex: Female
  Weight: 65 kg

DRUGS (1)
  1. OLANZAPINE. [Suspect]
     Active Substance: OLANZAPINE
     Indication: DEPRESSION
     Dosage: 10 MG/DAY UP TO 35 MG/DAY; 2.5 MG/DAY UNTIL SUSPENSION
     Route: 048
     Dates: start: 20170820, end: 201712

REACTIONS (7)
  - Cognitive disorder [Recovered/Resolved]
  - Self-injurious ideation [Recovered/Resolved]
  - Suicide attempt [Recovered/Resolved]
  - Communication disorder [Recovered/Resolved]
  - Weight increased [Recovered/Resolved]
  - Insomnia [Recovered/Resolved]
  - Psychotic disorder [Recovered/Resolved]

NARRATIVE: CASE EVENT DATE: 20170820
